FAERS Safety Report 6667371-7 (Version None)
Quarter: 2010Q2

REPORT INFORMATION
  Report Type: 
  Country: None (occurrence: None)
  Receive Date: 20100405
  Receipt Date: 20100324
  Transmission Date: 20101027
  Serious: Yes (Hospitalization)
  Sender: FDA-Public Use
  Company Number: PHHY2010MX15534

PATIENT
  Age: 64 Year
  Sex: Female

DRUGS (1)
  1. EXFORGE [Suspect]
     Indication: HYPERTENSION
     Dosage: 1 TABLET (160/5 MG) PED DAY
     Route: 065
     Dates: start: 20090801

REACTIONS (6)
  - ASTHMA [None]
  - DYSPNOEA [None]
  - HYPOAESTHESIA [None]
  - RESPIRATORY ARREST [None]
  - SOMNOLENCE [None]
  - SYNCOPE [None]
